FAERS Safety Report 5972304-2 (Version None)
Quarter: 2008Q4

REPORT INFORMATION
  Report Type: 
  Country: None (occurrence: None)
  Receive Date: 20081201
  Receipt Date: 20080715
  Transmission Date: 20090506
  Serious: Yes (Other)
  Sender: FDA-Public Use
  Company Number: US-TEVA-174724USA

PATIENT
  Sex: Female
  Weight: 65.83 kg

DRUGS (1)
  1. SALBUTAMOL SULFATE INHALATION, 0.09 MG [Suspect]
     Indication: DYSPNOEA
     Dosage: 2 PUFFS EVERY 4 HRS PRN
     Route: 055

REACTIONS (1)
  - DRUG EFFECT DECREASED [None]
